FAERS Safety Report 8592066-2 (Version None)
Quarter: 2012Q3

REPORT INFORMATION
  Report Type: 
  Country: None (occurrence: None)
  Receive Date: 20120814
  Receipt Date: 20120809
  Transmission Date: 20120928
  Serious: Yes (Death)
  Sender: FDA-Public Use
  Company Number: US-ASTELLAS-2012US006424

PATIENT
  Sex: Female

DRUGS (17)
  1. LEVAQUIN [Concomitant]
     Indication: PRODUCT USED FOR UNKNOWN INDICATION
     Dosage: 750 MG, UNKNOWN/D
     Route: 065
  2. ZOFRAN [Concomitant]
     Indication: PRODUCT USED FOR UNKNOWN INDICATION
     Dosage: 8 MG, UNKNOWN/D
     Route: 065
  3. ERLOTINIB HYDROCHLORIDE [Suspect]
     Indication: NON-SMALL CELL LUNG CANCER STAGE IV
     Dosage: 150 MG, UID/QD
     Route: 048
     Dates: start: 20120626, end: 20120701
  4. KENALOG [Concomitant]
     Indication: PRODUCT USED FOR UNKNOWN INDICATION
     Dosage: UNK
     Route: 065
     Dates: start: 20120622
  5. CELEXA [Concomitant]
     Indication: DEPRESSION
     Dosage: 20 MG, UNKNOWN/D
     Route: 065
  6. CELEXA [Concomitant]
     Indication: ANXIETY
  7. SCOPOLAMINE [Concomitant]
     Indication: PRODUCT USED FOR UNKNOWN INDICATION
     Dosage: 1.5 MG, Q3D
     Route: 062
  8. TRAMADOL HCL [Concomitant]
     Indication: CANCER PAIN
     Dosage: 100 MG, 1-2 TIMES DAILY
     Route: 065
  9. VICODIN ES [Concomitant]
     Indication: CANCER PAIN
     Dosage: 7.5-750 MG PRN LIMIT 5 PER DAY
     Route: 065
  10. XGEVA [Suspect]
     Indication: METASTASES TO BONE
     Dosage: Q 4-6 WEEKS
     Route: 065
  11. ATIVAN [Concomitant]
     Indication: PRODUCT USED FOR UNKNOWN INDICATION
     Dosage: 2 MG/ML, UNKNOWN/D
     Route: 065
  12. AMBIEN [Concomitant]
     Indication: PRODUCT USED FOR UNKNOWN INDICATION
     Dosage: 10 MG, UNKNOWN/D
     Route: 065
  13. NEURONTIN [Concomitant]
     Indication: PRODUCT USED FOR UNKNOWN INDICATION
     Dosage: 300 MG, UNKNOWN/D
     Route: 065
  14. CLEOCIN                            /00166004/ [Concomitant]
     Indication: PRODUCT USED FOR UNKNOWN INDICATION
     Dosage: 300 MG, UNKNOWN/D
     Route: 065
  15. LEXAPRO [Concomitant]
     Indication: PRODUCT USED FOR UNKNOWN INDICATION
     Dosage: 10 MG, UNKNOWN/D
     Route: 065
  16. MORPHINE [Concomitant]
     Indication: PRODUCT USED FOR UNKNOWN INDICATION
     Dosage: 20 MG/ML, UNKNOWN/D
     Route: 065
  17. DILAUDID [Concomitant]
     Indication: CANCER PAIN
     Dosage: 2 MG, PRN
     Route: 065

REACTIONS (1)
  - RESPIRATORY FAILURE [None]
